FAERS Safety Report 5341580-1 (Version None)
Quarter: 2007Q2

REPORT INFORMATION
  Report Type: 
  Country: None (occurrence: None)
  Receive Date: 20070529
  Receipt Date: 20070529
  Transmission Date: 20071010
  Serious: Yes (Life-Threatening, Hospitalization)
  Sender: FDA-Public Use
  Company Number: None

PATIENT
  Sex: Male
  Weight: 48.0813 kg

DRUGS (3)
  1. LEVAQUIN [Suspect]
     Indication: UPPER RESPIRATORY TRACT INFECTION
     Dosage: 500 MG (1100ML) IV Q 12 HR IV
     Route: 042
     Dates: start: 20070222, end: 20070224
  2. LEVAQUIN [Suspect]
     Indication: URINARY TRACT INFECTION
     Dosage: 500 MG (1100ML) IV Q 12 HR IV
     Route: 042
     Dates: start: 20070222, end: 20070224
  3. IV FLUIDS [Concomitant]

REACTIONS (6)
  - DYSPNOEA [None]
  - LOCALISED OEDEMA [None]
  - OEDEMA [None]
  - OEDEMA PERIPHERAL [None]
  - SWELLING FACE [None]
  - WEIGHT INCREASED [None]
